FAERS Safety Report 5317249-6 (Version None)
Quarter: 2007Q2

REPORT INFORMATION
  Report Type: 
  Country: None (occurrence: None)
  Receive Date: 20070504
  Receipt Date: 20070320
  Transmission Date: 20071010
  Serious: Yes (Hospitalization)
  Sender: FDA-Public Use
  Company Number: GB-BOEHRINGER INGELHEIM PHARMACEUTICALS, INC.-2007-UK-00896UK

PATIENT
  Sex: Female

DRUGS (2)
  1. HUMIRA [Suspect]
  2. COMBIVIR [Concomitant]
     Indication: RETROVIRAL INFECTION
     Route: 048
     Dates: start: 20021206, end: 20030103

REACTIONS (2)
  - HEPATIC FUNCTION ABNORMAL [None]
  - PREMATURE LABOUR [None]
